FAERS Safety Report 10592847 (Version 1)
Quarter: 2014Q4

REPORT INFORMATION
  Report Type: Spontaneous
  Country: US (occurrence: None)
  Receive Date: 20141118
  Receipt Date: 20141118
  Transmission Date: 20150529
  Serious: Yes (Other)
  Sender: FDA-Public Use
  Company Number: None

PATIENT
  Age: 73 Year
  Sex: Male
  Weight: 47.7 kg

DRUGS (1)
  1. EXJADE [Suspect]
     Active Substance: DEFERASIROX
     Indication: HAEMOCHROMATOSIS
     Route: 048

REACTIONS (4)
  - Urinary tract disorder [None]
  - Decreased appetite [None]
  - Haemoglobin decreased [None]
  - Gastric disorder [None]

NARRATIVE: CASE EVENT DATE: 20141017
